FAERS Safety Report 7340000-5 (Version None)
Quarter: 2011Q1

REPORT INFORMATION
  Report Type: 
  Country: None (occurrence: None)
  Receive Date: 20110309
  Receipt Date: 20110304
  Transmission Date: 20110831
  Serious: No
  Sender: FDA-Public Use
  Company Number: US-PFIZER INC-2011048384

PATIENT
  Sex: Female
  Weight: 68.027 kg

DRUGS (3)
  1. ADVIL COLD AND SINUS [Suspect]
     Indication: HEADACHE
  2. ORTHO TRI-CYCLEN [Concomitant]
     Indication: CONTRACEPTION
     Dosage: UNK
  3. ADVIL COLD AND SINUS [Suspect]
     Indication: SINUS DISORDER
     Dosage: 200 MG, 1X/DAY
     Route: 048
     Dates: start: 20110304

REACTIONS (1)
  - EYELID OEDEMA [None]
